FAERS Safety Report 8220431-1 (Version None)
Quarter: 2012Q1

REPORT INFORMATION
  Report Type: 
  Country: None (occurrence: None)
  Receive Date: 20120307
  Receipt Date: 20090511
  Transmission Date: 20120608
  Serious: No
  Sender: FDA-Public Use
  Company Number: PHEH2009US05046

PATIENT
  Sex: Male

DRUGS (1)
  1. AFINITOR [Suspect]
     Dosage: 10 MG
     Dates: start: 20090401, end: 20090508

REACTIONS (3)
  - FATIGUE [None]
  - PYREXIA [None]
  - CHILLS [None]
